FAERS Safety Report 8578493-8 (Version None)
Quarter: 2012Q3

REPORT INFORMATION
  Report Type: 
  Country: None (occurrence: None)
  Receive Date: 20120808
  Receipt Date: 20120802
  Transmission Date: 20120928
  Serious: Yes (Hospitalization)
  Sender: FDA-Public Use
  Company Number: US-BAYER-2012-050791

PATIENT
  Age: 50 Year
  Sex: Female
  Weight: 70.295 kg

DRUGS (5)
  1. BETASERON [Suspect]
     Indication: MULTIPLE SCLEROSIS
     Dosage: 0.3 MG, QOD
     Route: 058
     Dates: start: 20010101
  2. PROBIOTICS [Concomitant]
     Indication: PROBIOTIC THERAPY
     Dosage: 1 DF, QD
     Route: 048
  3. RANITIDINE [Concomitant]
     Indication: GASTROOESOPHAGEAL REFLUX DISEASE
     Dosage: 2 DF, UNK
     Route: 048
  4. VITAMIN D [Concomitant]
     Dosage: 1 DF, QD
  5. OMEPRAZOLE [Concomitant]
     Indication: GASTROOESOPHAGEAL REFLUX DISEASE
     Dosage: 1 DF, BID (1 CAP 20-30 MIN BEFORE BREAKFAST AND DINNER)
     Route: 048

REACTIONS (5)
  - APPENDICEAL ABSCESS [None]
  - MALAISE [None]
  - ABDOMINAL PAIN UPPER [None]
  - INCISION SITE PAIN [None]
  - APPENDICECTOMY [None]
